FAERS Safety Report 8992421 (Version 2)
Quarter: 2013Q1

REPORT INFORMATION
  Report Type: Spontaneous
  Country: IT (occurrence: IT)
  Receive Date: 20121231
  Receipt Date: 20130118
  Transmission Date: 20140127
  Serious: Yes (Hospitalization, Other)
  Sender: FDA-Public Use
  Company Number: IT-BRISTOL-MYERS SQUIBB COMPANY-17236498

PATIENT
  Age: 67 Year
  Sex: Female

DRUGS (7)
  1. COUMADIN TABS 5 MG [Suspect]
     Route: 048
     Dates: start: 20111009, end: 20121008
  2. TAPAZOLE [Suspect]
     Dosage: FORMULATION :TAPAZOLE 5 MG TABS
     Route: 048
     Dates: start: 20111009, end: 20121008
  3. BISOPROLOL HEMIFUMARATE [Concomitant]
     Route: 048
  4. FUROSEMIDE [Concomitant]
  5. FERROUS SULFATE [Concomitant]
  6. FOLIC ACID [Concomitant]
  7. LUVION [Concomitant]
     Dosage: LUVION 50MG TABS
     Route: 048

REACTIONS (2)
  - Arthralgia [Not Recovered/Not Resolved]
  - International normalised ratio increased [Unknown]
